FAERS Safety Report 9030719 (Version 1)
Quarter: 2013Q1

REPORT INFORMATION
  Report Type: Spontaneous
  Country: JP (occurrence: JP)
  Receive Date: 20130123
  Receipt Date: 20130123
  Transmission Date: 20140127
  Serious: Yes (Other)
  Sender: FDA-Public Use
  Company Number: JP-ROCHE-1109582

PATIENT
  Age: 69 Year
  Sex: Female
  Weight: 82 kg

DRUGS (5)
  1. MIRCERA [Suspect]
     Indication: NEPHROGENIC ANAEMIA
     Route: 058
     Dates: start: 20120125, end: 20120222
  2. MIRCERA [Suspect]
     Route: 058
     Dates: start: 20120321, end: 20120418
  3. MIRCERA [Suspect]
     Route: 058
     Dates: start: 20120502, end: 20120502
  4. EPOGIN S [Suspect]
     Indication: NEPHROGENIC ANAEMIA
     Dosage: DOSAGE IS UNCERTAIN.
     Route: 058
     Dates: start: 20101222, end: 20110330
  5. EPOGIN S [Suspect]
     Dosage: DOSAGE IS UNCERTAIN.
     Route: 058
     Dates: start: 20110511, end: 20110803

REACTIONS (1)
  - Aplasia pure red cell [Not Recovered/Not Resolved]
